FAERS Safety Report 8073552-0 (Version None)
Quarter: 2012Q1

REPORT INFORMATION
  Report Type: 
  Country: None (occurrence: None)
  Receive Date: 20120120
  Receipt Date: 20120110
  Transmission Date: 20120608
  Serious: Yes (Hospitalization)
  Sender: FDA-Public Use
  Company Number: DSJ-2012-00506

PATIENT
  Age: 52 Year
  Sex: Male

DRUGS (4)
  1. SIMVASTATIN [Concomitant]
  2. AMLODIPINE [Concomitant]
  3. BENICAR HCT [Suspect]
     Indication: HYPERTENSION
     Dosage: 40/12.5 MG (1 IN 1 D), PER ORAL, 80/25 MG (2 IN 1 D), PER ORAL
     Route: 048
     Dates: start: 20111201
  4. BENICAR HCT [Suspect]
     Indication: HYPERTENSION
     Dosage: 40/12.5 MG (1 IN 1 D), PER ORAL, 80/25 MG (2 IN 1 D), PER ORAL
     Route: 048
     Dates: start: 20110101, end: 20111201

REACTIONS (3)
  - OVERDOSE [None]
  - CALCULUS URINARY [None]
  - VARICOSE VEIN OPERATION [None]
